FAERS Safety Report 9671395 (Version 1)
Quarter: 2013Q4

REPORT INFORMATION
  Report Type: Spontaneous
  Country: US (occurrence: None)
  Receive Date: 20131105
  Receipt Date: 20131105
  Transmission Date: 20140711
  Serious: No
  Sender: FDA-Public Use
  Company Number: None

PATIENT
  Age: 64 Year
  Sex: Male
  Weight: 86.18 kg

DRUGS (3)
  1. LIDOCAINE [Suspect]
     Indication: BACK PAIN
     Dosage: 2 PATCHES ONCE DAILY APP;IED TO A SURFACE, USUALLY THE SKIN
  2. LIDOCAINE [Suspect]
     Indication: PROCEDURAL PAIN
     Dosage: 2 PATCHES ONCE DAILY APP;IED TO A SURFACE, USUALLY THE SKIN
  3. LIDOCAINE [Suspect]
     Indication: SURGERY
     Dosage: 2 PATCHES ONCE DAILY APP;IED TO A SURFACE, USUALLY THE SKIN

REACTIONS (5)
  - Drug effect decreased [None]
  - Product adhesion issue [None]
  - Product quality issue [None]
  - Product substitution issue [None]
  - Wrong technique in drug usage process [None]
